FAERS Safety Report 8244226-8 (Version None)
Quarter: 2012Q1

REPORT INFORMATION
  Report Type: 
  Country: None (occurrence: None)
  Receive Date: 20120329
  Receipt Date: 20120322
  Transmission Date: 20120608
  Serious: Yes (Hospitalization)
  Sender: FDA-Public Use
  Company Number: SE-PURDUE-GBR-2012-0010111

PATIENT
  Sex: Male

DRUGS (7)
  1. BUPRENORPHINE [Suspect]
     Indication: BACK PAIN
     Dosage: UNK MCG, Q1H
     Route: 062
     Dates: start: 20120119
  2. ACETAMINOPHEN [Concomitant]
  3. ARICEPT [Concomitant]
  4. ORALOVITE [Concomitant]
  5. ASPIRIN [Concomitant]
  6. VISCOTEARS [Concomitant]
  7. VESICARE [Concomitant]

REACTIONS (2)
  - FALL [None]
  - FACIAL SPASM [None]
